FAERS Safety Report 6844626-4 (Version None)
Quarter: 2010Q3

REPORT INFORMATION
  Report Type: 
  Country: None (occurrence: None)
  Receive Date: 20100715
  Receipt Date: 20100712
  Transmission Date: 20110219
  Serious: Yes (Life-Threatening, Hospitalization)
  Sender: FDA-Public Use
  Company Number: GB-MERCK-1007GBR00009

PATIENT
  Age: 66 Year
  Sex: Male

DRUGS (5)
  1. ZOCOR [Suspect]
     Indication: TRANSIENT ISCHAEMIC ATTACK
     Route: 048
     Dates: start: 20100621, end: 20100626
  2. ZOCOR [Suspect]
     Route: 048
     Dates: start: 20080101, end: 20080101
  3. ASPIRIN [Concomitant]
     Route: 065
  4. ASPIRIN [Concomitant]
     Route: 065
     Dates: start: 20080101, end: 20080101
  5. ASPIRIN [Concomitant]
     Route: 065
     Dates: start: 20100101, end: 20100101

REACTIONS (4)
  - AUTOIMMUNE THROMBOCYTOPENIA [None]
  - CONTUSION [None]
  - EPISTAXIS [None]
  - HAEMOPTYSIS [None]
